FAERS Safety Report 10047428 (Version 2)
Quarter: 2014Q1

REPORT INFORMATION
  Report Type: Spontaneous
  Country: FR (occurrence: FR)
  Receive Date: 20140331
  Receipt Date: 20140331
  Transmission Date: 20141002
  Serious: Yes (Other)
  Sender: FDA-Public Use
  Company Number: FR-ASTELLAS-2014EU001655

PATIENT
  Sex: Male

DRUGS (2)
  1. ADVAGRAF [Suspect]
     Dosage: UNK
     Route: 065
  2. CELLCEPT                           /01275102/ [Suspect]
     Dosage: UNK
     Route: 065

REACTIONS (2)
  - Thrombocytopenia [Not Recovered/Not Resolved]
  - Lymphopenia [Unknown]
